FAERS Safety Report 8792110 (Version 2)
Quarter: 2012Q4

REPORT INFORMATION
  Report Type: Report from Study
  Country: JP (occurrence: JP)
  Receive Date: 20120918
  Receipt Date: 20121217
  Transmission Date: 20130627
  Serious: Yes (Death)
  Sender: FDA-Public Use
  Company Number: JP-GENZYME-THYM-1003413

PATIENT
  Age: 34 Year
  Sex: Female
  Weight: 56 kg

DRUGS (2)
  1. THYMOGLOBULIN [Suspect]
     Indication: BONE MARROW CONDITIONING REGIMEN
     Dosage: 25 mg, qd
     Route: 065
     Dates: start: 20120121, end: 20120121
  2. THYMOGLOBULIN [Suspect]
     Dosage: 50 mg, qd
     Route: 065
     Dates: start: 20120122, end: 20120123

REACTIONS (1)
  - Venoocclusive disease [Fatal]
